FAERS Safety Report 13366470 (Version 1)
Quarter: 2017Q1

REPORT INFORMATION
  Report Type: Spontaneous
  Country: US (occurrence: US)
  Receive Date: 20170323
  Receipt Date: 20170323
  Transmission Date: 20170429
  Serious: No
  Sender: FDA-Public Use
  Company Number: None

PATIENT
  Age: 67 Year
  Sex: Female

DRUGS (21)
  1. LOSARTAN POT [Concomitant]
     Active Substance: LOSARTAN POTASSIUM
  2. TIZANIDINE. [Concomitant]
     Active Substance: TIZANIDINE
  3. OMEPRAZOLE. [Concomitant]
     Active Substance: OMEPRAZOLE
  4. BACLOFEN. [Concomitant]
     Active Substance: BACLOFEN
  5. CARISOPRODOL. [Concomitant]
     Active Substance: CARISOPRODOL
  6. SYMBICORT [Concomitant]
     Active Substance: BUDESONIDE\FORMOTEROL FUMARATE DIHYDRATE
  7. NYSTOP [Concomitant]
     Active Substance: NYSTATIN
  8. GILENYA [Suspect]
     Active Substance: FINGOLIMOD HYDROCHLORIDE
     Indication: MULTIPLE SCLEROSIS
     Route: 048
     Dates: start: 2014
  9. HYDROXYZ PAM [Concomitant]
     Active Substance: HYDROXYZINE PAMOATE
  10. PROAIR FHA [Concomitant]
  11. POLYETH GLYC POW [Concomitant]
  12. DICLOFENAC [Concomitant]
     Active Substance: DICLOFENAC
  13. FLUTICASONE. [Concomitant]
     Active Substance: FLUTICASONE
  14. LEVOTHYROXIN [Concomitant]
     Active Substance: LEVOTHYROXINE
  15. GABAPENTIN. [Concomitant]
     Active Substance: GABAPENTIN
  16. DULOXETINE. [Concomitant]
     Active Substance: DULOXETINE
  17. HYDROCHLOROT [Concomitant]
     Active Substance: HYDROCHLOROTHIAZIDE
  18. LYRICA [Concomitant]
     Active Substance: PREGABALIN
  19. STNBUCIRT [Concomitant]
  20. ALVESCO [Concomitant]
     Active Substance: CICLESONIDE
  21. MONTELUKAST [Concomitant]
     Active Substance: MONTELUKAST SODIUM

REACTIONS (1)
  - Progressive multiple sclerosis [None]

NARRATIVE: CASE EVENT DATE: 201703
